FAERS Safety Report 4869674-5 (Version None)
Quarter: 2005Q4

REPORT INFORMATION
  Report Type: 
  Country: None (occurrence: None)
  Receive Date: 20051223
  Receipt Date: 20051219
  Transmission Date: 20060501
  Serious: Yes (Hospitalization, Other)
  Sender: FDA-Public Use
  Company Number: HQWYE737829NOV05

PATIENT
  Age: 79 Year
  Sex: Male

DRUGS (11)
  1. AMIODARONE HCL [Suspect]
     Indication: ATRIAL FIBRILLATION
     Dosage: 200 MG 1X PER 1 DAY, ORAL
     Route: 048
     Dates: start: 20020101, end: 20051025
  2. LYRICA [Suspect]
     Indication: NEURALGIA
     Dosage: SEE IMAGE; FOR A FEW DAYS
     Route: 048
     Dates: start: 20051013, end: 20051001
  3. LYRICA [Suspect]
     Indication: NEURALGIA
     Dosage: SEE IMAGE; FOR A FEW DAYS
     Route: 048
     Dates: start: 20051001, end: 20051022
  4. WARFARIN (WARFARIN) [Concomitant]
  5. CO-DANTHRAMER (DANTRON/POLOXAMER) [Concomitant]
  6. CLOPIDOGREL (CLOPIDOGREL) [Concomitant]
  7. ISOSORBIDE MONONITRATE [Concomitant]
  8. SIMVASTATIN [Concomitant]
  9. FUROSEMIDE [Concomitant]
  10. ORAMORPH SR [Concomitant]
  11. ZOMORPH (MORPHINE SULFATE) [Concomitant]

REACTIONS (5)
  - ATRIOVENTRICULAR BLOCK COMPLETE [None]
  - BRADYCARDIA [None]
  - DRUG INTERACTION [None]
  - RASH ERYTHEMATOUS [None]
  - SKIN DISCOLOURATION [None]
